FAERS Safety Report 5238258-1 (Version None)
Quarter: 2007Q1

REPORT INFORMATION
  Report Type: 
  Country: None (occurrence: None)
  Receive Date: 20061208
  Receipt Date: 20050531
  Transmission Date: 20070707
  Serious: Yes (Other)
  Sender: FDA-Public Use
  Company Number: 2005UW08358

PATIENT
  Age: 71 Year
  Sex: Female
  Weight: 49.895 kg

DRUGS (2)
  1. CRESTOR [Suspect]
     Indication: BLOOD CHOLESTEROL INCREASED
     Dosage: 5 MG PO
     Route: 048
     Dates: start: 20050201
  2. TOPROL-XL [Concomitant]

REACTIONS (4)
  - ABDOMINAL DISTENSION [None]
  - EYE PRURITUS [None]
  - PRURITUS [None]
  - WEIGHT INCREASED [None]
